FAERS Safety Report 12326903 (Version 4)
Quarter: 2016Q3

REPORT INFORMATION
  Report Type: Spontaneous
  Country: US (occurrence: US)
  Receive Date: 20160503
  Receipt Date: 20160705
  Transmission Date: 20161109
  Serious: Yes (Hospitalization, Other)
  Sender: FDA-Public Use
  Company Number: US-PFIZER INC-2016211193

PATIENT
  Age: 73 Year
  Sex: Female
  Weight: 87.9 kg

DRUGS (9)
  1. GABAPENTIN. [Suspect]
     Active Substance: GABAPENTIN
     Indication: TRIGEMINAL NEURALGIA
     Dosage: 100 MG, 2X/DAY
     Route: 048
  2. GABAPENTIN. [Suspect]
     Active Substance: GABAPENTIN
     Dosage: 600 MG, 2X/DAY
     Dates: start: 2015
  3. GABAPENTIN. [Suspect]
     Active Substance: GABAPENTIN
     Dosage: 100 MG, 1X/DAY (AT NIGHT)
     Dates: start: 201507
  4. SYNTHROID [Concomitant]
     Active Substance: LEVOTHYROXINE SODIUM
     Dosage: 75 UG, 1X/DAY
     Dates: start: 2009
  5. TEGRETOL [Concomitant]
     Active Substance: CARBAMAZEPINE
     Dosage: 100 MG (200 MG 1/2 TAB), AS NEEDED
  6. LOSARTAN POTASSIUM. [Concomitant]
     Active Substance: LOSARTAN POTASSIUM
     Dosage: 100 MG, 1X/DAY
  7. GABAPENTIN. [Suspect]
     Active Substance: GABAPENTIN
     Dosage: 600 MG, 3X/DAY
     Dates: start: 2010, end: 2014
  8. PANTOPRAZOLE [Concomitant]
     Active Substance: PANTOPRAZOLE SODIUM
     Dosage: 100 MG, 1X/DAY
     Dates: start: 2014
  9. GABAPENTIN. [Suspect]
     Active Substance: GABAPENTIN
     Dosage: 300 MG, 2X/DAY
     Dates: start: 2010, end: 2014

REACTIONS (8)
  - Pre-existing condition improved [Recovered/Resolved]
  - Nausea [Recovered/Resolved]
  - Disease progression [Unknown]
  - Therapeutic response unexpected [Recovered/Resolved]
  - Decreased appetite [Unknown]
  - Dry mouth [Recovering/Resolving]
  - Renal neoplasm [Unknown]
  - Metastases to liver [Unknown]

NARRATIVE: CASE EVENT DATE: 201506
